FAERS Safety Report 9476144 (Version 2)
Quarter: 2013Q4

REPORT INFORMATION
  Report Type: Spontaneous
  Country: SE (occurrence: SE)
  Receive Date: 20130826
  Receipt Date: 20131003
  Transmission Date: 20140711
  Serious: Yes (Other)
  Sender: FDA-Public Use
  Company Number: SE-ASTRAZENECA-2013SE64337

PATIENT
  Sex: Female

DRUGS (5)
  1. SEROQUEL DEPOT [Suspect]
     Indication: SCHIZOPHRENIA
     Dosage: LOW DOSAGE
     Route: 048
     Dates: start: 2008
  2. SEROQUEL DEPOT [Suspect]
     Indication: SCHIZOPHRENIA
     Route: 048
     Dates: start: 2010
  3. SEROQUEL DEPOT [Suspect]
     Indication: SCHIZOPHRENIA
     Route: 048
  4. TRILAFON [Concomitant]
  5. INVEGA [Concomitant]
     Dates: start: 2011

REACTIONS (3)
  - Joint stiffness [Not Recovered/Not Resolved]
  - Mental disorder [Unknown]
  - Dysarthria [Not Recovered/Not Resolved]
